FAERS Safety Report 15750409 (Version 1)
Quarter: 2018Q4

REPORT INFORMATION
  Report Type: Report from Study
  Country: FR (occurrence: FR)
  Receive Date: 20181221
  Receipt Date: 20181221
  Transmission Date: 20190205
  Serious: Yes (Other)
  Sender: FDA-Public Use
  Company Number: FR-MYLANLABS-2018M1093784

PATIENT
  Sex: Male

DRUGS (3)
  1. DOCETAXEL. [Suspect]
     Active Substance: DOCETAXEL
     Indication: ANAL SQUAMOUS CELL CARCINOMA
     Dosage: RECEIVED ON DAY 1, SCHEDULED TO RECEIVE EACH CYCLE EVERY 3 WEEKS
     Route: 042
  2. CISPLATIN. [Suspect]
     Active Substance: CISPLATIN
     Indication: ANAL SQUAMOUS CELL CARCINOMA
     Dosage: RECEIVED ON DAY 1, SCHEDULED TO RECEIVE EACH CYCLE EVERY 3WEEKS
     Route: 042
  3. FLUOROURACIL. [Suspect]
     Active Substance: FLUOROURACIL
     Indication: ANAL SQUAMOUS CELL CARCINOMA
     Dosage: SCHEDULED TO RECEIVE FOR 5 DAYS IN EACH CYCLE EVERY 3 WEEKS
     Route: 042

REACTIONS (4)
  - Febrile neutropenia [Unknown]
  - Pulmonary embolism [Unknown]
  - Diarrhoea [Unknown]
  - Anaemia [Unknown]
